FAERS Safety Report 6821168-3 (Version None)
Quarter: 2010Q3

REPORT INFORMATION
  Report Type: 
  Country: None (occurrence: None)
  Receive Date: 20100707
  Receipt Date: 20080331
  Transmission Date: 20110219
  Serious: No
  Sender: FDA-Public Use
  Company Number: US-PFIZER INC-2008012005

PATIENT
  Sex: Female
  Weight: 54.43 kg

DRUGS (2)
  1. SERTRALINE [Suspect]
     Indication: LABORATORY TEST ABNORMAL
     Route: 048
  2. DRUG, UNSPECIFIED [Concomitant]
     Indication: MENOPAUSE

REACTIONS (3)
  - FEELING ABNORMAL [None]
  - GASTROINTESTINAL DISORDER [None]
  - WEIGHT DECREASED [None]
